FAERS Safety Report 19258567 (Version 1)
Quarter: 2021Q2

REPORT INFORMATION
  Report Type: Spontaneous
  Country: FR (occurrence: FR)
  Receive Date: 20210514
  Receipt Date: 20210514
  Transmission Date: 20210717
  Serious: Yes (Hospitalization)
  Sender: FDA-Public Use
  Company Number: FR-TAKEDA-2021TEU004575

PATIENT
  Age: 32 Year
  Sex: Male

DRUGS (7)
  1. LANSOPRAZOLE. [Suspect]
     Active Substance: LANSOPRAZOLE
     Indication: GASTROOESOPHAGEAL REFLUX DISEASE
     Dosage: 30 MILLIGRAM, QD
     Route: 048
  2. DANTRIUM [Concomitant]
     Active Substance: DANTROLENE SODIUM
     Dosage: UNK UNK, QD
     Route: 048
     Dates: start: 20210330, end: 20210416
  3. VITAB?C [Concomitant]
     Dosage: UNK UNK, QD
     Route: 047
     Dates: start: 20210310
  4. LEVETIRACETAM. [Concomitant]
     Active Substance: LEVETIRACETAM
     Dosage: 2 GRAM, QD
     Route: 048
     Dates: start: 20210305
  5. MICROPAKINE [Concomitant]
     Active Substance: VALPROATE SODIUM
     Dosage: UNK UNK, QD
     Route: 048
     Dates: start: 20210308
  6. ISTINE [Concomitant]
     Dosage: 16 MILLIGRAM, QD
     Route: 048
     Dates: start: 20210308
  7. MODERNA COVID?19 VACCINE [Suspect]
     Active Substance: CX-024414
     Indication: COVID-19 IMMUNISATION
     Dosage: UNK
     Route: 030
     Dates: start: 20210407, end: 20210407

REACTIONS (2)
  - Hypomagnesaemia [Unknown]
  - Generalised tonic-clonic seizure [Recovering/Resolving]

NARRATIVE: CASE EVENT DATE: 20210415
